FAERS Safety Report 16422640 (Version 1)
Quarter: 2019Q2

REPORT INFORMATION
  Report Type: Spontaneous
  Country: US (occurrence: US)
  Receive Date: 20190612
  Receipt Date: 20190612
  Transmission Date: 20190711
  Serious: Yes (Other)
  Sender: FDA-Public Use
  Company Number: US-SA-2019SA151130

PATIENT
  Age: 85 Year
  Sex: Male

DRUGS (2)
  1. NASACORT ALLERGY 24HR [Suspect]
     Active Substance: TRIAMCINOLONE ACETONIDE
     Indication: ASTHMA
     Dosage: UNK UNK, PRN
  2. WARFARIN [Concomitant]
     Active Substance: WARFARIN
     Indication: ANTICOAGULANT THERAPY

REACTIONS (2)
  - Inappropriate schedule of product administration [Unknown]
  - Cataract operation [Unknown]

NARRATIVE: CASE EVENT DATE: 201812
